FAERS Safety Report 9425565 (Version 1)
Quarter: 2013Q3

REPORT INFORMATION
  Report Type: Spontaneous
  Country: US (occurrence: US)
  Receive Date: 20130729
  Receipt Date: 20130729
  Transmission Date: 20140515
  Serious: No
  Sender: FDA-Public Use
  Company Number: US-MYLANLABS-2012S1024066

PATIENT
  Age: 61 Year
  Sex: Male
  Weight: 77.11 kg

DRUGS (3)
  1. LEVOTHYROXINE SODIUM TABLETS, USP [Suspect]
     Indication: THYROIDECTOMY
     Route: 048
     Dates: start: 201205, end: 201208
  2. CALCIUM [Concomitant]
     Route: 048
  3. ASA [Concomitant]
     Route: 048

REACTIONS (1)
  - Blood thyroid stimulating hormone increased [Recovered/Resolved]
